FAERS Safety Report 7713009-7 (Version None)
Quarter: 2011Q3

REPORT INFORMATION
  Report Type: 
  Country: None (occurrence: None)
  Receive Date: 20110826
  Receipt Date: 20110818
  Transmission Date: 20111222
  Serious: Yes (Hospitalization)
  Sender: FDA-Public Use
  Company Number: ES-PERRIGO-11ES006738

PATIENT
  Age: 85 Year
  Sex: Female

DRUGS (2)
  1. CORTICOSTEROIDS [Suspect]
     Indication: PRODUCT USED FOR UNKNOWN INDICATION
     Dosage: UNK
     Route: 065
  2. ACETAMINOPHEN [Suspect]
     Indication: OSTEOARTHRITIS
     Dosage: 1950 MG, QD
     Route: 048

REACTIONS (3)
  - THROMBOCYTOPENIA [None]
  - ARTHRALGIA [None]
  - LIVER INJURY [None]
